FAERS Safety Report 4757407-2 (Version None)
Quarter: 2005Q3

REPORT INFORMATION
  Report Type: 
  Country: None (occurrence: None)
  Receive Date: 20050829
  Receipt Date: 20050824
  Transmission Date: 20060218
  Serious: Yes (Hospitalization)
  Sender: FDA-Public Use
  Company Number: 200511291BCC

PATIENT
  Age: 87 Year
  Sex: Male
  Weight: 90.2658 kg

DRUGS (1)
  1. ALEVE [Suspect]
     Indication: BACK PAIN
     Dosage: SEE IMAGE
     Route: 048
     Dates: start: 20050324, end: 20050325

REACTIONS (4)
  - HAEMOPTYSIS [None]
  - HAEMORRHAGE [None]
  - IATROGENIC INJURY [None]
  - PROCEDURAL COMPLICATION [None]
